FAERS Safety Report 9168332 (Version 1)
Quarter: 2013Q1

REPORT INFORMATION
  Report Type: Spontaneous
  Country: CI (occurrence: None)
  Receive Date: 20130305
  Receipt Date: 20130305
  Transmission Date: 20140127
  Serious: Yes (Other)
  Sender: FDA-Public Use
  Company Number: CI-MACLEODS PHARMA-000065

PATIENT
  Age: 4 Year
  Sex: 0

DRUGS (2)
  1. LEVOFLOXACIN [Suspect]
     Indication: MYCOBACTERIUM ULCERANS INFECTION
  2. RIFAMPICIN [Suspect]
     Indication: MYCOBACTERIUM ULCERANS INFECTION

REACTIONS (3)
  - Off label use [None]
  - Mycobacterium ulcerans infection [None]
  - Condition aggravated [None]
